FAERS Safety Report 4955927-9 (Version None)
Quarter: 2006Q1

REPORT INFORMATION
  Report Type: 
  Country: None (occurrence: None)
  Receive Date: 20060201
  Receipt Date: 20051115
  Transmission Date: 20060701
  Serious: No
  Sender: FDA-Public Use
  Company Number: FACT0500680

PATIENT
  Age: 43 Year
  Sex: Female

DRUGS (17)
  1. FACTIVE [Suspect]
     Indication: RESPIRATORY TRACT INFECTION BACTERIAL
     Dosage: 320 MG, QD, ORAL
     Route: 048
     Dates: start: 20051026, end: 20051102
  2. GENTAMICIN PLUS OCEAN SPRAY NASAL SPRAY () [Suspect]
     Indication: CHRONIC SINUSITIS
     Dates: start: 20051026
  3. CLARINEX/USA/(DESLORATADINE) [Concomitant]
  4. ALLEGRA [Concomitant]
  5. ASTELIN [Concomitant]
  6. DIFLUCAN [Concomitant]
  7. DYAZIDE [Concomitant]
  8. NEURONTIN [Concomitant]
  9. NYSTATIN [Concomitant]
  10. RHINOCORT [Concomitant]
  11. SINGULAIR [Concomitant]
  12. SEREVENT [Concomitant]
  13. ALBUTEROL [Concomitant]
  14. CELEXA [Concomitant]
  15. LOVASTATIN [Concomitant]
  16. LEVOXYL [Concomitant]
  17. VALTREX [Concomitant]

REACTIONS (3)
  - FLUSHING [None]
  - RASH GENERALISED [None]
  - URTICARIA [None]
